FAERS Safety Report 22133555 (Version 2)
Quarter: 2023Q1

REPORT INFORMATION
  Report Type: Report from Study
  Country: AU (occurrence: AU)
  Receive Date: 20230324
  Receipt Date: 20230329
  Transmission Date: 20230418
  Serious: Yes (Hospitalization, Other)
  Sender: FDA-Public Use
  Company Number: AU-CELLTRION INC.-2023AU005892

PATIENT

DRUGS (1)
  1. INFLIXIMAB [Suspect]
     Active Substance: INFLIXIMAB
     Indication: Crohn^s disease
     Dosage: 120 MILLIGRAM, EVERY 2 WEEKS
     Route: 058
     Dates: start: 20220927

REACTIONS (4)
  - Crohn^s disease [Unknown]
  - Abdominal pain [Unknown]
  - Hot flush [Unknown]
  - Therapy interrupted [Unknown]

NARRATIVE: CASE EVENT DATE: 20230317
